FAERS Safety Report 19301154 (Version 1)
Quarter: 2021Q2

REPORT INFORMATION
  Report Type: Spontaneous
  Country: US (occurrence: US)
  Receive Date: 20210524
  Receipt Date: 20210524
  Transmission Date: 20210717
  Serious: Yes (Other)
  Sender: FDA-Public Use
  Company Number: US-CLARIONBRANDS-2021-US-010459

PATIENT
  Age: 23 Year
  Sex: Male
  Weight: 72.58 kg

DRUGS (1)
  1. CERTAIN DRI ROLL?ON [Suspect]
     Active Substance: ALUMINUM CHLORIDE
     Indication: PERSONAL HYGIENE
     Dosage: APPLIED TO BOTH UNDERARMS ONCE DAILY
     Route: 061
     Dates: start: 20210510, end: 20210512

REACTIONS (7)
  - Application site erythema [Recovering/Resolving]
  - Sweat gland disorder [Recovered/Resolved]
  - Application site swelling [Recovered/Resolved]
  - Staphylococcal infection [Unknown]
  - Application site pain [Recovered/Resolved]
  - Application site pain [Recovered/Resolved]
  - Cellulitis [Unknown]

NARRATIVE: CASE EVENT DATE: 20210511
